FAERS Safety Report 9410671 (Version 2)
Quarter: 2013Q3

REPORT INFORMATION
  Report Type: Spontaneous
  Country: US (occurrence: US)
  Receive Date: 20130719
  Receipt Date: 20130809
  Transmission Date: 20140515
  Serious: Yes (Hospitalization, Other)
  Sender: FDA-Public Use
  Company Number: US-BRISTOL-MYERS SQUIBB COMPANY-19099845

PATIENT
  Age: 89 Year
  Sex: Female
  Weight: 59.41 kg

DRUGS (11)
  1. COUMADIN TABS 5 MG [Suspect]
     Route: 048
  2. PLAVIX [Suspect]
     Dosage: 1 DF = 1 UNITS
     Route: 048
  3. ATIVAN [Concomitant]
  4. MAXAIR INHALER [Concomitant]
     Route: 055
  5. SINGULAIR [Concomitant]
     Route: 048
  6. SPIRIVA [Concomitant]
     Route: 055
  7. PATADAY [Concomitant]
  8. GAS-X [Concomitant]
     Dosage: TABS CHEWABLE
  9. DEXLANSOPRAZOLE [Concomitant]
     Dosage: CAPS
     Route: 048
  10. SYNTHROID [Concomitant]
     Route: 048
  11. TIAZAC [Concomitant]
     Route: 048

REACTIONS (6)
  - Cerebrovascular accident [Unknown]
  - Cardiac disorder [Unknown]
  - Retinal vascular thrombosis [Unknown]
  - Pleuritic pain [Unknown]
  - Cough [Unknown]
  - Pain [Unknown]
